FAERS Safety Report 18574467 (Version 1)
Quarter: 2020Q4

REPORT INFORMATION
  Report Type: Spontaneous
  Country: US (occurrence: US)
  Receive Date: 20201202
  Receipt Date: 20201202
  Transmission Date: 20210114
  Serious: Yes (Life-Threatening, Disabling)
  Sender: FDA-Public Use
  Company Number: None

PATIENT
  Age: 44 Year
  Sex: Female
  Weight: 51.75 kg

DRUGS (3)
  1. DIAZEPAM. [Suspect]
     Active Substance: DIAZEPAM
     Indication: DRUG THERAPY
     Dates: end: 20160901
  2. LORAZEPAM. [Suspect]
     Active Substance: LORAZEPAM
     Indication: ANXIETY
     Dates: start: 20121001, end: 20130301
  3. LORAZEPAM. [Suspect]
     Active Substance: LORAZEPAM
     Indication: INSOMNIA
     Dates: start: 20121001, end: 20130301

REACTIONS (6)
  - Insomnia [None]
  - Bedridden [None]
  - Tremor [None]
  - Withdrawal syndrome [None]
  - Drug dependence [None]
  - Seizure [None]

NARRATIVE: CASE EVENT DATE: 20121001
